FAERS Safety Report 23426767 (Version 2)
Quarter: 2024Q1

REPORT INFORMATION
  Report Type: Spontaneous
  Country: JP (occurrence: JP)
  Receive Date: 20240122
  Receipt Date: 20240122
  Transmission Date: 20240410
  Serious: Yes (Death, Life-Threatening, Hospitalization, Other)
  Sender: FDA-Public Use
  Company Number: None

PATIENT
  Age: 46 Year
  Sex: Male

DRUGS (34)
  1. CASPOFUNGIN [Suspect]
     Active Substance: CASPOFUNGIN
     Indication: Antifungal prophylaxis
     Dosage: 50 MILLIGRAM; ON DAYS ? 34 TO ? 21
     Route: 042
  2. CASPOFUNGIN [Suspect]
     Active Substance: CASPOFUNGIN
     Dosage: 50 MILLIGRAM; ON DAYS ? 9 TO ? 8
     Route: 042
  3. ETOPOSIDE [Suspect]
     Active Substance: ETOPOSIDE
     Indication: Acute myeloid leukaemia
     Dosage: 100 MILLIGRAM/SQ. METER, CYCLICAL FOR 5 DAYS
     Route: 042
  4. ETOPOSIDE [Suspect]
     Active Substance: ETOPOSIDE
     Indication: Salvage therapy
  5. METHOTREXATE [Suspect]
     Active Substance: METHOTREXATE
     Indication: Acute myeloid leukaemia
     Dosage: 15 MILLIGRAM, CYCLICAL. 4 CYCLES
     Route: 037
  6. METHOTREXATE [Suspect]
     Active Substance: METHOTREXATE
     Indication: KMT2A gene mutation
  7. DEXAMETHASONE [Suspect]
     Active Substance: DEXAMETHASONE
     Indication: Acute myeloid leukaemia
     Dosage: 3.3 MILLIGRAM, CYCLICAL 4 CYCLES
     Route: 037
  8. DEXAMETHASONE [Suspect]
     Active Substance: DEXAMETHASONE
     Indication: KMT2A gene mutation
  9. MYCOPHENOLATE MOFETIL [Suspect]
     Active Substance: MYCOPHENOLATE MOFETIL
     Indication: Prophylaxis against graft versus host disease
     Dosage: UNK
     Route: 048
  10. TACROLIMUS [Suspect]
     Active Substance: TACROLIMUS
     Indication: Prophylaxis against graft versus host disease
     Dosage: UNK
     Route: 042
  11. VENETOCLAX [Suspect]
     Active Substance: VENETOCLAX
     Indication: Salvage therapy
     Dosage: 400 MILLIGRAM, CYCLICAL FOR 14 DAYS (5600 MILLIGRAM)
     Route: 048
  12. VENETOCLAX [Suspect]
     Active Substance: VENETOCLAX
     Indication: Acute myeloid leukaemia
  13. VINCRISTINE [Suspect]
     Active Substance: VINCRISTINE
     Indication: Salvage therapy
     Dosage: 0.8 MILLIGRAM/SQ. METER, CYCLICAL; 0.8 MG/M2 IV FOR 1 DAY
     Route: 042
  14. VINCRISTINE [Suspect]
     Active Substance: VINCRISTINE
     Indication: Acute myeloid leukaemia
  15. AZACITIDINE [Suspect]
     Active Substance: AZACITIDINE
     Indication: Salvage therapy
     Dosage: 75 MILLIGRAM/SQ. METER, CYCLICAL FOR 7 DYAS
     Route: 042
  16. AZACITIDINE [Suspect]
     Active Substance: AZACITIDINE
     Indication: Acute myeloid leukaemia
  17. FLUDARABINE [Suspect]
     Active Substance: FLUDARABINE PHOSPHATE
     Indication: Salvage therapy
     Dosage: CYCLICAL; 21.6 MG/M2 IV FOR 5 DAYS ((108 MILLIGRAM/SQ. METER),
     Route: 042
  18. FLUDARABINE [Suspect]
     Active Substance: FLUDARABINE PHOSPHATE
     Indication: Acute myeloid leukaemia
     Dosage: 30 MG/M2, CYCLICAL
     Route: 042
  19. FLUDARABINE [Suspect]
     Active Substance: FLUDARABINE PHOSPHATE
     Indication: Bone marrow conditioning regimen
  20. METHYLPREDNISOLONE [Suspect]
     Active Substance: METHYLPREDNISOLONE
     Indication: Acute graft versus host disease in skin
     Dosage: 1 MILLIGRAM/KILOGRAM
     Route: 042
  21. MICAFUNGIN [Suspect]
     Active Substance: MICAFUNGIN SODIUM
     Indication: Antifungal prophylaxis
     Dosage: 150 MILLIGRAM; ON DAYS-20 TO-16
     Route: 042
  22. MICAFUNGIN [Suspect]
     Active Substance: MICAFUNGIN SODIUM
     Dosage: 150 MILLIGRAM; ON DAYS -66 TO -35
     Route: 042
  23. FLUCONAZOLE [Suspect]
     Active Substance: FLUCONAZOLE
     Indication: Antifungal prophylaxis
     Dosage: 200 MILLIGRAM; ON DAYS - 84 TO - 67
     Route: 042
  24. FLUCONAZOLE [Suspect]
     Active Substance: FLUCONAZOLE
     Dosage: 200 MILLIGRAM
     Route: 042
  25. CYTARABINE [Suspect]
     Active Substance: CYTARABINE
     Indication: Acute myeloid leukaemia
     Dosage: 40 MILLIGRAM, CYCLICAL FOR 4 CYCLES
     Route: 037
  26. CYTARABINE [Suspect]
     Active Substance: CYTARABINE
     Indication: Salvage therapy
     Dosage: 2 GRAM PER SQUARE METRE, CYCLICAL FOR 5 DYA
     Route: 042
  27. CYTARABINE [Suspect]
     Active Substance: CYTARABINE
     Indication: KMT2A gene mutation
     Dosage: 100 MILLIGRAM/SQ. METER, CYCLICAL FOR 7 DAYS
     Route: 042
  28. CYTARABINE [Suspect]
     Active Substance: CYTARABINE
     Indication: Bone marrow conditioning regimen
     Dosage: 4 G/M2, CYCLICAL
     Route: 042
  29. IDARUBICIN [Suspect]
     Active Substance: IDARUBICIN
     Indication: Salvage therapy
     Dosage: 10 MILLIGRAM/SQ. METER, CYCLICAL FOR 3 DAYS
     Route: 042
  30. IDARUBICIN [Suspect]
     Active Substance: IDARUBICIN
     Indication: Acute myeloid leukaemia
  31. VINDESINE [Suspect]
     Active Substance: VINDESINE
     Indication: Salvage therapy
     Dosage: 6 MILLIGRAM/SQ. METER, CYCLICAL; 6 MG/M2 IV FOR 1 DAY
     Route: 042
  32. VINDESINE [Suspect]
     Active Substance: VINDESINE
     Indication: Acute myeloid leukaemia
  33. CYCLOPHOSPHAMIDE [Suspect]
     Active Substance: CYCLOPHOSPHAMIDE
     Indication: Prophylaxis against graft versus host disease
     Dosage: 50 MG/KG PER DAY
     Route: 042
  34. MELPHALAN [Suspect]
     Active Substance: MELPHALAN
     Indication: Bone marrow conditioning regimen
     Dosage: 100 MG/M2
     Route: 042

REACTIONS (15)
  - Multiple organ dysfunction syndrome [Fatal]
  - Loss of consciousness [Fatal]
  - Ileus paralytic [Fatal]
  - Acute respiratory failure [Fatal]
  - Fungal infection [Fatal]
  - Peritonitis [Fatal]
  - Cystitis [Fatal]
  - Haematological infection [Fatal]
  - Central nervous system infection [Fatal]
  - Fungal skin infection [Fatal]
  - Candida infection [Fatal]
  - Pneumonia fungal [Fatal]
  - Gastrointestinal fungal infection [Fatal]
  - Drug ineffective [Fatal]
  - Off label use [Unknown]
